FAERS Safety Report 9815575 (Version 1)
Quarter: 2014Q1

REPORT INFORMATION
  Report Type: Spontaneous
  Country: CO (occurrence: None)
  Receive Date: 20140110
  Receipt Date: 20140110
  Transmission Date: 20141002
  Serious: Yes (Death, Hospitalization)
  Sender: FDA-Public Use
  Company Number: DSU-2014-00005

PATIENT
  Sex: Female

DRUGS (1)
  1. OLMETEC HCT [Suspect]
     Indication: HYPERTENSION
     Dosage: UNKNOWN (QD), PER ORAL
     Route: 048
     Dates: start: 2009, end: 201306

REACTIONS (1)
  - Lung disorder [None]
